FAERS Safety Report 8831778 (Version 1)
Quarter: 2012Q4

REPORT INFORMATION
  Report Type: 
  Country: US (occurrence: US)
  Receive Date: 20121009
  Receipt Date: 20121009
  Transmission Date: 20130627
  Serious: Yes (Hospitalization, Other)
  Sender: FDA-Public Use
  Company Number: US-ROCHE-1137632

PATIENT
  Age: 67 None
  Sex: Female

DRUGS (1)
  1. ACTEMRA [Suspect]
     Indication: RHEUMATOID ARTHRITIS
     Dosage: date of the last dose  received :23/jun/2012
     Route: 042

REACTIONS (5)
  - Hip fracture [Unknown]
  - Post procedural complication [Unknown]
  - Abscess drainage [Unknown]
  - Musculoskeletal disorder [Not Recovered/Not Resolved]
  - Joint swelling [Unknown]
